FAERS Safety Report 4852072-8 (Version None)
Quarter: 2005Q4

REPORT INFORMATION
  Report Type: 
  Country: None (occurrence: None)
  Receive Date: 20051213
  Receipt Date: 20051111
  Transmission Date: 20060501
  Serious: Yes (Hospitalization)
  Sender: FDA-Public Use
  Company Number: FR-ROCHE-424509

PATIENT
  Age: 52 Year
  Sex: Female

DRUGS (3)
  1. CAPECITABINE [Suspect]
     Dosage: CUMULATIVE DOSE=45600 MG/M2 ADMINISTERED ON DAYS 1-14 OF A 21 DAY CYCLE.
     Route: 048
     Dates: start: 20041018, end: 20050929
  2. LAPATINIB [Suspect]
     Dosage: CUMULATIVE DOSE=30500 MG.
     Route: 048
     Dates: start: 20041018, end: 20050929
  3. ATODERM [Concomitant]
     Dates: start: 20050715, end: 20050915

REACTIONS (1)
  - ACUTE MYELOID LEUKAEMIA [None]
